FAERS Safety Report 9552338 (Version 1)
Quarter: 2013Q3

REPORT INFORMATION
  Report Type: Spontaneous
  Country: US (occurrence: None)
  Receive Date: 20130924
  Receipt Date: 20130924
  Transmission Date: 20140515
  Serious: Yes (Death)
  Sender: FDA-Public Use
  Company Number: None

PATIENT
  Age: 61 Year
  Sex: Female

DRUGS (3)
  1. SANCUSO [Suspect]
     Indication: NAUSEA
     Route: 062
     Dates: start: 20130318, end: 20130922
  2. SANCUSO [Suspect]
     Route: 062
     Dates: start: 20130318, end: 20130922
  3. SANCUSO [Suspect]
     Indication: VOMITING
     Route: 062
     Dates: start: 20130318, end: 20130922

REACTIONS (1)
  - Death [None]
